FAERS Safety Report 7142651-X (Version None)
Quarter: 2010Q4

REPORT INFORMATION
  Report Type: 
  Country: None (occurrence: None)
  Receive Date: 20101207
  Receipt Date: 20101127
  Transmission Date: 20110411
  Serious: Yes (Hospitalization)
  Sender: FDA-Public Use
  Company Number: GB-ABBOTT-10P-167-0688166-00

PATIENT
  Sex: Male

DRUGS (1)
  1. HUMIRA [Suspect]
     Indication: CROHN'S DISEASE
     Route: 058
     Dates: start: 20100701

REACTIONS (4)
  - PENILE ULCERATION [None]
  - RASH ERYTHEMATOUS [None]
  - TESTICULAR PAIN [None]
  - TESTICULAR SWELLING [None]
